FAERS Safety Report 23784655 (Version 11)
Quarter: 2025Q1

REPORT INFORMATION
  Report Type: Spontaneous
  Country: PL (occurrence: None)
  Receive Date: 20240425
  Receipt Date: 20250310
  Transmission Date: 20250409
  Serious: Yes (Death, Hospitalization, Other)
  Sender: INCYTE
  Company Number: PL-002147023-NVSC2024PL070299

PATIENT
  Age: 30 Year

DRUGS (31)
  1. RUXOLITINIB [Suspect]
     Active Substance: RUXOLITINIB
     Indication: Chronic graft versus host disease
  2. CYCLOSPORINE [Suspect]
     Active Substance: CYCLOSPORINE
     Indication: Prophylaxis against graft versus host disease
     Route: 065
  3. CYCLOSPORINE [Suspect]
     Active Substance: CYCLOSPORINE
     Indication: Chronic graft versus host disease
  4. METHOTREXATE [Suspect]
     Active Substance: METHOTREXATE
     Indication: Prophylaxis against graft versus host disease
     Route: 065
  5. METHOTREXATE [Suspect]
     Active Substance: METHOTREXATE
     Indication: Graft versus host disease
  6. CANDESARTAN [Suspect]
     Active Substance: CANDESARTAN
     Indication: Chronic graft versus host disease
     Route: 065
  7. CANDESARTAN [Suspect]
     Active Substance: CANDESARTAN
     Route: 065
  8. MYCOPHENOLATE MOFETIL [Suspect]
     Active Substance: MYCOPHENOLATE MOFETIL
     Indication: Graft versus host disease
     Route: 065
  9. SACUBITRIL\VALSARTAN [Suspect]
     Active Substance: SACUBITRIL\VALSARTAN
     Indication: Product used for unknown indication
     Route: 065
  10. AZITHROMYCIN [Suspect]
     Active Substance: AZITHROMYCIN
     Indication: Graft versus host disease
     Route: 065
  11. MONTELUKAST [Suspect]
     Active Substance: MONTELUKAST
     Indication: Graft versus host disease
     Route: 065
  12. MONTELUKAST [Suspect]
     Active Substance: MONTELUKAST
     Indication: Lung disorder
  13. TACROLIMUS [Suspect]
     Active Substance: TACROLIMUS
     Indication: Chronic graft versus host disease
     Route: 065
  14. FLUTICASONE [Suspect]
     Active Substance: FLUTICASONE
     Indication: Chronic graft versus host disease
     Route: 065
  15. FLUTICASONE [Suspect]
     Active Substance: FLUTICASONE
     Indication: Graft versus host disease
  16. METHYLPREDNISOLONE [Suspect]
     Active Substance: METHYLPREDNISOLONE
     Indication: Graft versus host disease
     Route: 065
  17. METHYLPREDNISOLONE [Suspect]
     Active Substance: METHYLPREDNISOLONE
     Indication: Chronic graft versus host disease
  18. MELPHALAN [Suspect]
     Active Substance: MELPHALAN
     Indication: Chronic graft versus host disease
     Route: 065
  19. MELPHALAN [Suspect]
     Active Substance: MELPHALAN
     Route: 065
  20. MELPHALAN [Suspect]
     Active Substance: MELPHALAN
     Route: 065
  21. FLUDARA [Suspect]
     Active Substance: FLUDARABINE PHOSPHATE
     Indication: Chronic graft versus host disease
     Route: 065
  22. FLUDARA [Suspect]
     Active Substance: FLUDARABINE PHOSPHATE
     Route: 065
  23. FLUDARA [Suspect]
     Active Substance: FLUDARABINE PHOSPHATE
     Route: 065
  24. MOMETASONE FUROATE [Suspect]
     Active Substance: MOMETASONE FUROATE
     Indication: Chronic graft versus host disease
     Route: 065
  25. TORSEMIDE [Suspect]
     Active Substance: TORSEMIDE
     Indication: Product used for unknown indication
     Route: 065
  26. TORSEMIDE [Suspect]
     Active Substance: TORSEMIDE
     Dosage: 100 MG, QD (2X1 TAB)
     Route: 065
  27. TORSEMIDE [Suspect]
     Active Substance: TORSEMIDE
     Route: 065
  28. TORSEMIDE [Suspect]
     Active Substance: TORSEMIDE
     Dosage: 200 MG, QD (100 MG, BID)
     Route: 065
  29. METOPROLOL TARTRATE [Suspect]
     Active Substance: METOPROLOL TARTRATE
     Indication: Lung disorder
     Route: 065
  30. SIROLIMUS [Suspect]
     Active Substance: SIROLIMUS
     Indication: Chronic graft versus host disease
     Route: 065
  31. DECADRON (DEXAMETHASONE SODIUM PHOSPHATE) [Suspect]
     Active Substance: DEXAMETHASONE SODIUM PHOSPHATE
     Indication: Chronic graft versus host disease
     Route: 065

REACTIONS (14)
  - Ejection fraction abnormal [Unknown]
  - Condition aggravated [Fatal]
  - Cough [Unknown]
  - Drug ineffective for unapproved indication [Unknown]
  - Disease progression [Fatal]
  - Chronic graft versus host disease [Fatal]
  - Disease recurrence [Fatal]
  - Exercise tolerance decreased [Unknown]
  - Product use in unapproved indication [Unknown]
  - Off label use [Unknown]
  - Pneumonia [Fatal]
  - Heart rate increased [Unknown]
  - Drug resistance [Fatal]
  - Pulmonary congestion [Unknown]
